FAERS Safety Report 7770781 (Version 2)
Quarter: 2014Q1

REPORT INFORMATION
  Report Type: Spontaneous
  Country: US (occurrence: US)
  Receive Date: 20110124
  Receipt Date: 20140203
  Transmission Date: 20141002
  Serious: Yes (Other)
  Sender: FDA-Public Use
  Company Number: US-JNJFOC-20110105153

PATIENT
  Age: 58 Year
  Sex: Female

DRUGS (5)
  1. SANDOZ FENTANYL TRANSDERMAL SYSTEM [Suspect]
     Indication: ARTHRALGIA
     Route: 062
     Dates: start: 201006
  2. SEROQUEL [Concomitant]
     Indication: DEPRESSION
     Route: 065
  3. CELEXA [Concomitant]
     Indication: DEPRESSION
     Route: 048
  4. DIABETES MEDICATION [Concomitant]
     Indication: DIABETES MELLITUS
     Route: 065
     Dates: start: 2010
  5. TOPAMAX [Concomitant]
     Indication: CONVULSION
     Route: 065

REACTIONS (5)
  - Diabetes mellitus [Not Recovered/Not Resolved]
  - Product quality issue [Unknown]
  - Withdrawal syndrome [Recovered/Resolved]
  - Arthralgia [Recovered/Resolved]
  - Drug ineffective [Recovered/Resolved]
